FAERS Safety Report 4538688-7 (Version None)
Quarter: 2005Q1

REPORT INFORMATION
  Report Type: 
  Country: None (occurrence: None)
  Receive Date: 20041223
  Receipt Date: 20040921
  Transmission Date: 20050727
  Serious: No
  Sender: FDA-Public Use
  Company Number: US-JNJFOC-20040907891

PATIENT
  Age: 30 Year
  Sex: Female
  Weight: 92.5338 kg

DRUGS (3)
  1. ORTHO EVRA [Suspect]
     Indication: DYSMENORRHOEA
     Dosage: 1 DOSE(S), 3 IN 4 WEEK , TRANSDERMAL
     Route: 062
     Dates: start: 20040601, end: 20040701
  2. ORTHO EVRA [Suspect]
     Indication: MENSTRUAL DISORDER
     Dosage: 1 DOSE(S), 3 IN 4 WEEK , TRANSDERMAL
     Route: 062
     Dates: start: 20040601, end: 20040701
  3. IBUPROFEN [Concomitant]

REACTIONS (2)
  - ALOPECIA [None]
  - HAEMORRHAGE [None]
